FAERS Safety Report 8836280 (Version 1)
Quarter: 2012Q4

REPORT INFORMATION
  Report Type: 
  Country: IT (occurrence: IT)
  Receive Date: 20121011
  Receipt Date: 20121011
  Transmission Date: 20130627
  Serious: Yes (Other)
  Sender: FDA-Public Use
  Company Number: PHHY2012IT087355

PATIENT
  Age: 39 Year
  Sex: Female

DRUGS (1)
  1. CLARITHROMYCIN [Suspect]
     Indication: ACUTE SINUSITIS
     Dosage: 1000 mg, daily dose
     Route: 048
     Dates: start: 20120213, end: 20120215

REACTIONS (1)
  - Angioedema [Recovered/Resolved]
